FAERS Safety Report 21138924 (Version 1)
Quarter: 2022Q3

REPORT INFORMATION
  Report Type: Other
  Country: JP (occurrence: None)
  Receive Date: 20220727
  Receipt Date: 20220727
  Transmission Date: 20221027
  Serious: Yes (Death)
  Sender: FDA-Public Use
  Company Number: JP-ROCHE-3148075

PATIENT

DRUGS (8)
  1. CAPECITABINE [Suspect]
     Active Substance: CAPECITABINE
     Indication: Rectal cancer
     Dosage: ON DAYS 1-7 FOLLOWED BY 7 DAYS OF REST
     Route: 048
  2. CAPECITABINE [Suspect]
     Active Substance: CAPECITABINE
     Indication: Rectal adenocarcinoma
     Dosage: ON DAYS 1 THROUGH 14 (AS CAPOX REGIMEN AS ADJUVANT CHEMOTHERAPY)
     Route: 048
  3. OXALIPLATIN [Suspect]
     Active Substance: OXALIPLATIN
     Indication: Rectal cancer
     Dosage: ON DAY 1. OXALIPLATIN IN 5% DEXTROSE (250 ML)
     Route: 042
  4. OXALIPLATIN [Suspect]
     Active Substance: OXALIPLATIN
     Indication: Rectal adenocarcinoma
     Dosage: ON DAY 1 EVERY 3 WEEKS FOR FOUR CYCLES
     Route: 042
  5. IRINOTECAN [Suspect]
     Active Substance: IRINOTECAN
     Indication: Rectal cancer
     Dosage: ON DAY 1. IRINOTECAN IN 5% DEXTROSE (250 ML) WAS ADMINISTERED OVER A 90 MIN PERIOD FOLLOWED IMMEDIAT
     Route: 042
  6. IRINOTECAN [Suspect]
     Active Substance: IRINOTECAN
     Indication: Rectal adenocarcinoma
  7. LEUCOVORIN [Suspect]
     Active Substance: LEUCOVORIN
     Indication: Rectal cancer
     Dosage: EUCOVORIN IN 5% DEXTROSE (250 ML) OVER A 2 H PERIOD THROUGH A Y CONNECTOR.
     Route: 065
  8. LEUCOVORIN [Suspect]
     Active Substance: LEUCOVORIN
     Indication: Rectal adenocarcinoma

REACTIONS (1)
  - Cerebral infarction [Fatal]
